FAERS Safety Report 11526642 (Version 1)
Quarter: 2015Q3

REPORT INFORMATION
  Report Type: Spontaneous
  Country: US (occurrence: US)
  Receive Date: 20150903
  Receipt Date: 20150903
  Transmission Date: 20151125
  Serious: Yes (Other)
  Sender: FDA-Public Use
  Company Number: US-ELI_LILLY_AND_COMPANY-US201312005258

PATIENT
  Age: 36 Year
  Sex: Male

DRUGS (4)
  1. CYMBALTA [Suspect]
     Active Substance: DULOXETINE HYDROCHLORIDE
     Indication: DEPRESSION
     Dosage: 30 MG, QD
     Route: 065
  2. CYMBALTA [Suspect]
     Active Substance: DULOXETINE HYDROCHLORIDE
     Dosage: 60 MG, QD
     Route: 065
     Dates: end: 201312
  3. CYMBALTA [Suspect]
     Active Substance: DULOXETINE HYDROCHLORIDE
     Dosage: 30 MG, QOD
     Route: 065
  4. CYMBALTA [Suspect]
     Active Substance: DULOXETINE HYDROCHLORIDE
     Dosage: 30 MG, 2/W
     Route: 065
     Dates: end: 201401

REACTIONS (13)
  - Irritability [Unknown]
  - Drug ineffective [Unknown]
  - Suicidal ideation [Unknown]
  - Mood swings [Unknown]
  - Disturbance in attention [Unknown]
  - Depression [Unknown]
  - Yawning [Unknown]
  - Off label use [Unknown]
  - Poor quality sleep [Unknown]
  - Paraesthesia [Unknown]
  - Disorientation [Unknown]
  - Somnolence [Unknown]
  - Drug withdrawal syndrome [Recovered/Resolved]

NARRATIVE: CASE EVENT DATE: 201312
